FAERS Safety Report 11682639 (Version 2)
Quarter: 2015Q4

REPORT INFORMATION
  Report Type: Spontaneous
  Country: US (occurrence: US)
  Receive Date: 20151029
  Receipt Date: 20151120
  Transmission Date: 20160304
  Serious: Yes (Hospitalization, Other)
  Sender: FDA-Public Use
  Company Number: US-PFIZER INC-2015357362

PATIENT
  Age: 57 Year
  Sex: Male
  Weight: 98 kg

DRUGS (3)
  1. AMBISOME [Suspect]
     Active Substance: AMPHOTERICIN B
     Indication: FUNGAL INFECTION
     Dosage: 450 MG, 1X/DAY
     Route: 042
     Dates: start: 20141213, end: 20150212
  2. VFEND [Suspect]
     Active Substance: VORICONAZOLE
     Indication: FUNGAL INFECTION
     Dosage: 300 MG, 2X/DAY
     Route: 048
  3. AMBISOME [Suspect]
     Active Substance: AMPHOTERICIN B
     Indication: PROPHYLAXIS
     Dosage: 500 MG, 1X/DAY
     Route: 042
     Dates: start: 20150408, end: 20150522

REACTIONS (7)
  - Hypomagnesaemia [Recovered/Resolved]
  - Acute kidney injury [Unknown]
  - Dizziness [Recovered/Resolved]
  - Urticaria [Recovered/Resolved]
  - Hypokalaemia [Recovered/Resolved]
  - Thrombocytopenia [Not Recovered/Not Resolved]
  - Cholestasis [Unknown]

NARRATIVE: CASE EVENT DATE: 20141230
